FAERS Safety Report 16799289 (Version 4)
Quarter: 2020Q1

REPORT INFORMATION
  Report Type: Spontaneous
  Country: JP (occurrence: JP)
  Receive Date: 20190912
  Receipt Date: 20200206
  Transmission Date: 20200409
  Serious: Yes (Hospitalization)
  Sender: FDA-Public Use
  Company Number: JP-ABBVIE-19K-087-2918639-00

PATIENT
  Age: 72 Year
  Sex: Female

DRUGS (4)
  1. DUODOPA [Suspect]
     Active Substance: CARBIDOPA\LEVODOPA
     Indication: PARKINSON^S DISEASE
     Dosage: MD: 13.0 ML?CD: 4.0 ML/HR?ED: 1.0 ML/UNIT
     Route: 050
  2. ROTIGOTINE [Concomitant]
     Active Substance: ROTIGOTINE
  3. ROTIGOTINE [Concomitant]
     Active Substance: ROTIGOTINE
     Indication: PRODUCT USED FOR UNKNOWN INDICATION
  4. DONEPEZIL HYDROCHLORIDE. [Concomitant]
     Active Substance: DONEPEZIL HYDROCHLORIDE
     Indication: PRODUCT USED FOR UNKNOWN INDICATION
     Route: 048

REACTIONS (6)
  - Dyskinesia [Recovering/Resolving]
  - Dehydration [Unknown]
  - Therapeutic product effect incomplete [Unknown]
  - Dysphagia [Unknown]
  - Urinary tract infection [Unknown]
  - Muscle contracture [Unknown]
